FAERS Safety Report 14815194 (Version 1)
Quarter: 2018Q2

REPORT INFORMATION
  Report Type: Spontaneous
  Country: US (occurrence: US)
  Receive Date: 20180426
  Receipt Date: 20180426
  Transmission Date: 20180711
  Serious: Yes (Death)
  Sender: FDA-Public Use
  Company Number: US-PFIZER INC-2018169403

PATIENT
  Age: 80 Year
  Sex: Male

DRUGS (1)
  1. IBRANCE [Suspect]
     Active Substance: PALBOCICLIB
     Dosage: 125 MG, CYCLIC [1 PO QD X 21 DAYS, SKIP 7 DAYS]
     Route: 048

REACTIONS (2)
  - Death [Fatal]
  - Product use issue [Unknown]
